FAERS Safety Report 9743044 (Version 2)
Quarter: 2014Q2

REPORT INFORMATION
  Report Type: Spontaneous
  Country: US (occurrence: US)
  Receive Date: 20131210
  Receipt Date: 20140519
  Transmission Date: 20141212
  Serious: Yes (Hospitalization)
  Sender: FDA-Public Use
  Company Number: US-B.I. PHARMACEUTICALS,INC./RIDGEFIELD-2013-BI-40790BP

PATIENT
  Age: 81 Year
  Sex: 0
  Weight: 55.34 kg

DRUGS (4)
  1. PRADAXA [Suspect]
     Indication: ATRIAL FIBRILLATION
     Dosage: 300 MG
     Route: 048
     Dates: start: 20110118, end: 20111213
  2. METOPROLOL [Concomitant]
     Dosage: 50 MG
     Route: 048
  3. DIGOXIN [Concomitant]
     Dosage: 0.25 MG
     Route: 048
  4. ZOCOR [Concomitant]
     Dosage: 20 MG
     Route: 048

REACTIONS (2)
  - Gastrointestinal haemorrhage [Unknown]
  - Haemorrhagic anaemia [Unknown]
